FAERS Safety Report 15866720 (Version 3)
Quarter: 2019Q3

REPORT INFORMATION
  Report Type: Report from Study
  Country: US (occurrence: US)
  Receive Date: 20190125
  Receipt Date: 20190730
  Transmission Date: 20191004
  Serious: Yes (Hospitalization, Other)
  Sender: FDA-Public Use
  Company Number: US-JNJFOC-20190121440

PATIENT
  Age: 63 Year
  Sex: Female

DRUGS (1)
  1. STELARA [Suspect]
     Active Substance: USTEKINUMAB
     Indication: CROHN^S DISEASE
     Route: 058
     Dates: start: 20181002

REACTIONS (8)
  - Cough [Unknown]
  - Sepsis [Recovering/Resolving]
  - Impaired healing [Recovered/Resolved]
  - Inappropriate schedule of product administration [Unknown]
  - Renal failure [Recovering/Resolving]
  - Rash pruritic [Unknown]
  - Staphylococcal infection [Recovering/Resolving]
  - Dry throat [Unknown]

NARRATIVE: CASE EVENT DATE: 20181128
